FAERS Safety Report 6938839-0 (Version None)
Quarter: 2010Q3

REPORT INFORMATION
  Report Type: 
  Country: None (occurrence: None)
  Receive Date: 20100824
  Receipt Date: 20100813
  Transmission Date: 20110219
  Serious: Yes (Death, Hospitalization)
  Sender: FDA-Public Use
  Company Number: SE-PFIZER INC-2010072008

PATIENT
  Age: 54 Year
  Sex: Female

DRUGS (4)
  1. SPIRONOLACTONE [Suspect]
     Dosage: 25 MG, UNK
     Dates: start: 20080101
  2. RAMIPRIL [Suspect]
     Dosage: 1.25 MG, UNK
     Dates: start: 20080101
  3. POTASSIUM CHLORIDE [Suspect]
     Dosage: 750 MG, 2X/DAY
     Dates: start: 20080101
  4. DICLOFENAC [Suspect]
     Dosage: UNK
     Dates: start: 20100201

REACTIONS (5)
  - BLOOD POTASSIUM INCREASED [None]
  - DEATH [None]
  - GENERAL PHYSICAL HEALTH DETERIORATION [None]
  - MYOCARDIAL INFARCTION [None]
  - PERSONALITY CHANGE [None]
